FAERS Safety Report 17146162 (Version 5)
Quarter: 2024Q3

REPORT INFORMATION
  Report Type: Spontaneous
  Country: FR (occurrence: FR)
  Receive Date: 20191212
  Receipt Date: 20240830
  Transmission Date: 20241017
  Serious: Yes (Other)
  Sender: JOHNSON AND JOHNSON
  Company Number: FR-ACCORD-161703

PATIENT
  Age: 9 Year
  Sex: Male

DRUGS (15)
  1. REMICADE [Suspect]
     Active Substance: INFLIXIMAB
     Indication: Graft versus host disease in gastrointestinal tract
     Route: 041
  2. REMICADE [Suspect]
     Active Substance: INFLIXIMAB
     Indication: Acute graft versus host disease in skin
  3. REMICADE [Suspect]
     Active Substance: INFLIXIMAB
     Indication: Graft versus host disease in lung
  4. MYCOPHENOLATE MOFETIL [Suspect]
     Active Substance: MYCOPHENOLATE MOFETIL
     Indication: Graft versus host disease in gastrointestinal tract
     Route: 065
  5. MYCOPHENOLATE MOFETIL [Suspect]
     Active Substance: MYCOPHENOLATE MOFETIL
     Indication: Acute graft versus host disease in skin
  6. MYCOPHENOLATE MOFETIL [Suspect]
     Active Substance: MYCOPHENOLATE MOFETIL
     Indication: Graft versus host disease in lung
  7. TACROLIMUS [Suspect]
     Active Substance: TACROLIMUS
     Indication: Graft versus host disease in gastrointestinal tract
     Route: 065
  8. TACROLIMUS [Suspect]
     Active Substance: TACROLIMUS
     Indication: Acute graft versus host disease in skin
  9. TACROLIMUS [Suspect]
     Active Substance: TACROLIMUS
     Indication: Graft versus host disease in lung
  10. RITUXIMAB [Suspect]
     Active Substance: RITUXIMAB
     Indication: Graft versus host disease in gastrointestinal tract
     Route: 065
  11. RITUXIMAB [Suspect]
     Active Substance: RITUXIMAB
     Indication: Acute graft versus host disease in skin
  12. RITUXIMAB [Suspect]
     Active Substance: RITUXIMAB
     Indication: Graft versus host disease in lung
  13. BASILIXIMAB [Suspect]
     Active Substance: BASILIXIMAB
     Indication: Graft versus host disease in gastrointestinal tract
     Route: 065
  14. BASILIXIMAB [Suspect]
     Active Substance: BASILIXIMAB
     Indication: Acute graft versus host disease in skin
  15. BASILIXIMAB [Suspect]
     Active Substance: BASILIXIMAB
     Indication: Graft versus host disease in lung

REACTIONS (4)
  - Bronchopulmonary aspergillosis [Unknown]
  - Mucormycosis [Unknown]
  - Tooth hypoplasia [Unknown]
  - Off label use [Unknown]
